FAERS Safety Report 7464225-3 (Version None)
Quarter: 2011Q2

REPORT INFORMATION
  Report Type: 
  Country: None (occurrence: None)
  Receive Date: 20110506
  Receipt Date: 20110425
  Transmission Date: 20111010
  Serious: Yes (Other)
  Sender: FDA-Public Use
  Company Number: ES-WATSON-2011-06070

PATIENT
  Age: 80 Year
  Sex: Male

DRUGS (1)
  1. GALANTAMINE HYDROBROMIDE [Suspect]
     Indication: DEMENTIA ALZHEIMER'S TYPE
     Dosage: 24 MG, DAILY
     Route: 065
     Dates: start: 20080901, end: 20081001

REACTIONS (2)
  - MYOCLONUS [None]
  - RESPIRATORY DISORDER [None]
